FAERS Safety Report 7535191 (Version 3)
Quarter: 2012Q4

REPORT INFORMATION
  Report Type: 
  Country: JP (occurrence: US)
  Receive Date: 20100810
  Receipt Date: 20121109
  Transmission Date: 20130627
  Serious: Yes (Other)
  Sender: FDA-Public Use
  Company Number: US-JNJFOC-20100800997

PATIENT
  Age: 62 Year
  Sex: Male

DRUGS (7)
  1. LEVAQUIN [Suspect]
     Indication: OSTEOMYELITIS
     Route: 048
  2. LEVAQUIN [Suspect]
     Indication: INFECTION
     Route: 048
  3. CIPRO [Suspect]
     Indication: BENIGN PROSTATIC HYPERPLASIA
     Route: 048
  4. CIPRO [Suspect]
     Indication: NEUROGENIC BLADDER
     Route: 048
  5. CIPRO [Suspect]
     Indication: URINARY TRACT INFECTION
     Route: 048
  6. AVELOX [Suspect]
     Indication: URINARY TRACT INFECTION
     Route: 065
  7. STEROIDS NOS [Suspect]
     Indication: BACK PAIN
     Route: 008

REACTIONS (7)
  - Rotator cuff syndrome [Unknown]
  - Tendon rupture [Unknown]
  - Rotator cuff syndrome [Not Recovered/Not Resolved]
  - Tendon disorder [Unknown]
  - Osteoarthritis [Unknown]
  - Meniscus injury [Unknown]
  - Tendon disorder [Unknown]
